FAERS Safety Report 14890531 (Version 1)
Quarter: 2018Q2

REPORT INFORMATION
  Report Type: Spontaneous
  Country: CH (occurrence: CH)
  Receive Date: 20180514
  Receipt Date: 20180514
  Transmission Date: 20180711
  Serious: Yes (Other)
  Sender: FDA-Public Use
  Company Number: PHHY2018CH004686

PATIENT
  Age: 4 Year
  Sex: Female

DRUGS (4)
  1. METHOTREXATE (METHOTREXATE SODIUM) [Suspect]
     Active Substance: METHOTREXATE SODIUM
     Indication: JUVENILE IDIOPATHIC ARTHRITIS
     Dosage: 10 MG, QW
     Route: 048
     Dates: start: 20180304
  2. ACIDUM FOLICUM STREULI [Concomitant]
     Active Substance: FOLIC ACID
     Indication: PRODUCT USED FOR UNKNOWN INDICATION
     Dosage: 5 MG, QW
     Route: 048
     Dates: start: 20160916
  3. REMICADE [Concomitant]
     Active Substance: INFLIXIMAB
     Indication: JUVENILE IDIOPATHIC ARTHRITIS
     Dosage: 100 MG, UNK (EVERY 4 TO 5 WEEKS)
     Route: 042
     Dates: start: 20170223
  4. METHOTREXATE FARMOS [Suspect]
     Active Substance: METHOTREXATE
     Indication: JUVENILE IDIOPATHIC ARTHRITIS
     Dosage: 10 MG, QW
     Route: 048
     Dates: start: 20160916, end: 20180225

REACTIONS (2)
  - Pyrexia [Recovering/Resolving]
  - Malaise [Recovering/Resolving]

NARRATIVE: CASE EVENT DATE: 201711
